FAERS Safety Report 25612084 (Version 1)
Quarter: 2025Q3

REPORT INFORMATION
  Report Type: Spontaneous
  Country: US (occurrence: US)
  Receive Date: 20250728
  Receipt Date: 20250728
  Transmission Date: 20251021
  Serious: Yes (Death, Hospitalization, Other)
  Sender: AMGEN
  Company Number: US-AMGEN-USASP2025144432

PATIENT
  Age: 78 Year
  Sex: Male

DRUGS (1)
  1. PREDNISONE [Suspect]
     Active Substance: PREDNISONE
     Indication: Granuloma
     Dosage: 40 MILLIGRAM, QD
     Route: 065

REACTIONS (7)
  - Death [Fatal]
  - Vision blurred [Unknown]
  - Orbital oedema [Unknown]
  - Pulmonary embolism [Unknown]
  - Metastatic neoplasm [Unknown]
  - Drug ineffective for unapproved indication [Unknown]
  - Off label use [Unknown]
